FAERS Safety Report 7610101-2 (Version None)
Quarter: 2011Q3

REPORT INFORMATION
  Report Type: 
  Country: None (occurrence: None)
  Receive Date: 20110715
  Receipt Date: 20110706
  Transmission Date: 20111222
  Serious: Yes (Hospitalization)
  Sender: FDA-Public Use
  Company Number: US-BIOGENIDEC-2011BI025216

PATIENT
  Age: 48 Year
  Sex: Female

DRUGS (3)
  1. AVONEX [Suspect]
     Indication: MULTIPLE SCLEROSIS
     Route: 030
     Dates: start: 20091201
  2. AVONEX [Suspect]
     Route: 030
     Dates: start: 20030201, end: 20040501
  3. AVONEX [Suspect]
     Route: 030
     Dates: start: 20050601

REACTIONS (3)
  - DIABETES MELLITUS [None]
  - FISTULA [None]
  - DIALYSIS [None]
